FAERS Safety Report 19188636 (Version 1)
Quarter: 2021Q2

REPORT INFORMATION
  Report Type: Spontaneous
  Country: US (occurrence: US)
  Receive Date: 20210427
  Receipt Date: 20210427
  Transmission Date: 20210717
  Serious: Yes (Other)
  Sender: FDA-Public Use
  Company Number: US-PRINSTON PHARMACEUTICAL INC.-2019PRN00899

PATIENT
  Sex: Male

DRUGS (7)
  1. CLONAZEPAM. [Suspect]
     Active Substance: CLONAZEPAM
     Dosage: ^TRIED TO WEEN OFF SLOWLY^
  2. CLONAZEPAM. [Suspect]
     Active Substance: CLONAZEPAM
     Dosage: 2 MG
  3. UNSPECIFIED SLEEPING PILLS [Concomitant]
  4. CLONAZEPAM. [Suspect]
     Active Substance: CLONAZEPAM
     Indication: ANGER
     Dosage: 1 MG
     Dates: start: 1999
  5. CLONAZEPAM. [Suspect]
     Active Substance: CLONAZEPAM
     Dosage: 2 MG
  6. CLONAZEPAM. [Suspect]
     Active Substance: CLONAZEPAM
     Dosage: 1.5 MG
  7. UNSPECIFIED RESTLESS LEGS MEDICATION [Concomitant]

REACTIONS (6)
  - Aphasia [Recovering/Resolving]
  - Drug dependence [Unknown]
  - Tremor [Unknown]
  - Hyperhidrosis [Unknown]
  - Product use in unapproved indication [Not Recovered/Not Resolved]
  - Movement disorder [Unknown]

NARRATIVE: CASE EVENT DATE: 1999
